FAERS Safety Report 7802089-6 (Version None)
Quarter: 2011Q4

REPORT INFORMATION
  Report Type: 
  Country: None (occurrence: None)
  Receive Date: 20111005
  Receipt Date: 20110919
  Transmission Date: 20120403
  Serious: Yes (Other)
  Sender: FDA-Public Use
  Company Number: JPI-P-017218

PATIENT
  Age: 57 Year
  Sex: Female

DRUGS (9)
  1. XYREM [Suspect]
     Indication: SOMNOLENCE
     Dosage: 3 GM (1.5 GM,2 IN 1 D),ORAL ; ORAL ; 6 GM (3 GM,2 IN 1 D),ORAL
     Route: 048
     Dates: start: 20110817
  2. XYREM [Suspect]
     Indication: SLEEP DISORDER
     Dosage: 3 GM (1.5 GM,2 IN 1 D),ORAL ; ORAL ; 6 GM (3 GM,2 IN 1 D),ORAL
     Route: 048
     Dates: start: 20110817
  3. XYREM [Suspect]
     Indication: NARCOLEPSY
     Dosage: 3 GM (1.5 GM,2 IN 1 D),ORAL ; ORAL ; 6 GM (3 GM,2 IN 1 D),ORAL
     Route: 048
     Dates: start: 20110817
  4. XYREM [Suspect]
     Indication: SOMNOLENCE
     Dosage: 3 GM (1.5 GM,2 IN 1 D),ORAL ; ORAL ; 6 GM (3 GM,2 IN 1 D),ORAL
     Route: 048
     Dates: start: 20110211
  5. XYREM [Suspect]
     Indication: SLEEP DISORDER
     Dosage: 3 GM (1.5 GM,2 IN 1 D),ORAL ; ORAL ; 6 GM (3 GM,2 IN 1 D),ORAL
     Route: 048
     Dates: start: 20110211
  6. XYREM [Suspect]
     Indication: NARCOLEPSY
     Dosage: 3 GM (1.5 GM,2 IN 1 D),ORAL ; ORAL ; 6 GM (3 GM,2 IN 1 D),ORAL
     Route: 048
     Dates: start: 20110211
  7. XYREM [Suspect]
     Indication: SOMNOLENCE
     Dosage: 3 GM (1.5 GM,2 IN 1 D),ORAL ; ORAL ; 6 GM (3 GM,2 IN 1 D),ORAL
     Route: 048
     Dates: start: 20110101, end: 20110101
  8. XYREM [Suspect]
     Indication: SLEEP DISORDER
     Dosage: 3 GM (1.5 GM,2 IN 1 D),ORAL ; ORAL ; 6 GM (3 GM,2 IN 1 D),ORAL
     Route: 048
     Dates: start: 20110101, end: 20110101
  9. XYREM [Suspect]
     Indication: NARCOLEPSY
     Dosage: 3 GM (1.5 GM,2 IN 1 D),ORAL ; ORAL ; 6 GM (3 GM,2 IN 1 D),ORAL
     Route: 048
     Dates: start: 20110101, end: 20110101

REACTIONS (1)
  - KNEE ARTHROPLASTY [None]
